FAERS Safety Report 10192888 (Version 2)
Quarter: 2014Q2

REPORT INFORMATION
  Report Type: Spontaneous
  Country: US (occurrence: US)
  Receive Date: 20140523
  Receipt Date: 20140618
  Transmission Date: 20141212
  Serious: Yes (Death)
  Sender: FDA-Public Use
  Company Number: US-B.I. PHARMACEUTICALS,INC./RIDGEFIELD-2014-BI-22970BP

PATIENT
  Sex: Female

DRUGS (6)
  1. SPIRIVA [Suspect]
     Indication: PRODUCT USED FOR UNKNOWN INDICATION
     Dosage: 18 MCG
     Route: 055
     Dates: start: 201309
  2. COMBIVENT [Suspect]
     Indication: PRODUCT USED FOR UNKNOWN INDICATION
     Dosage: STRENGTH: 20 MCG / 100 MCG
     Route: 055
     Dates: start: 201402
  3. CELEXA [Concomitant]
     Route: 048
  4. NEXIUM [Concomitant]
     Route: 048
  5. SEROQUEL [Concomitant]
     Route: 048
     Dates: start: 2009
  6. SYMBICORT [Concomitant]
     Route: 055

REACTIONS (1)
  - Death [Fatal]
